FAERS Safety Report 18142521 (Version 1)
Quarter: 2020Q3

REPORT INFORMATION
  Report Type: Spontaneous
  Country: CN (occurrence: CN)
  Receive Date: 20200813
  Receipt Date: 20200813
  Transmission Date: 20201103
  Serious: Yes (Other)
  Sender: FDA-Public Use
  Company Number: CN-009507513-2008CHN007534

PATIENT
  Age: 28 Year
  Sex: Male
  Weight: 84 kg

DRUGS (1)
  1. TIENAM [Suspect]
     Active Substance: CILASTATIN SODIUM\IMIPENEM
     Indication: ANTIINFLAMMATORY THERAPY
     Dosage: 0.5 GRAM, QID
     Route: 041
     Dates: start: 20200726, end: 20200806

REACTIONS (1)
  - Epilepsy [Recovering/Resolving]

NARRATIVE: CASE EVENT DATE: 20200806
